FAERS Safety Report 13843031 (Version 2)
Quarter: 2017Q3

REPORT INFORMATION
  Report Type: Spontaneous
  Country: DE (occurrence: DE)
  Receive Date: 20170808
  Receipt Date: 20170814
  Transmission Date: 20171127
  Serious: Yes (Hospitalization)
  Sender: FDA-Public Use
  Company Number: DE-AUROBINDO-AUR-APL-2017-38649

PATIENT
  Age: 64 Year
  Sex: Female
  Weight: 70 kg

DRUGS (7)
  1. AMISULPRID [Concomitant]
     Active Substance: AMISULPRIDE
     Indication: SCHIZOPHRENIA
     Dosage: 200 MG, UNK
     Route: 048
     Dates: start: 20170629, end: 20170702
  2. LORAZEPAM. [Concomitant]
     Active Substance: LORAZEPAM
     Indication: PRODUCT USED FOR UNKNOWN INDICATION
     Dosage: 1.5 MG, UNK
     Route: 048
     Dates: start: 20170704, end: 20170720
  3. OLANZAPIN PUREN 10MG ORODISPERSIBLE TABLET [Suspect]
     Active Substance: OLANZAPINE
     Indication: SCHIZOPHRENIA
     Dosage: UNK
     Dates: start: 20170710, end: 20170713
  4. PIRENZEPIN [Concomitant]
     Active Substance: PIRENZEPINE
     Indication: PRODUCT USED FOR UNKNOWN INDICATION
     Dosage: 75 MG, UNK
     Route: 048
     Dates: start: 20170629, end: 20170704
  5. CLOZAPIN RATIOPHARM [Suspect]
     Active Substance: CLOZAPINE
     Indication: SCHIZOPHRENIA
     Dosage: 75 MG, TWO TIMES A DAY
     Route: 048
     Dates: start: 201706, end: 20170703
  6. FOSFOMYCIN [Concomitant]
     Active Substance: FOSFOMYCIN
     Indication: URINARY TRACT INFECTION
     Dosage: 8 G, UNK
     Route: 048
     Dates: start: 20170705, end: 20170705
  7. AMISULPRID [Concomitant]
     Active Substance: AMISULPRIDE
     Dosage: 600 MG, UNK
     Route: 048
     Dates: start: 20170703

REACTIONS (1)
  - Troponin T increased [Recovering/Resolving]

NARRATIVE: CASE EVENT DATE: 201707
